FAERS Safety Report 4649251-1 (Version None)
Quarter: 2005Q2

REPORT INFORMATION
  Report Type: 
  Country: None (occurrence: None)
  Receive Date: 20050429
  Receipt Date: 20050330
  Transmission Date: 20051028
  Serious: Yes (Death, Life-Threatening)
  Sender: FDA-Public Use
  Company Number: TN-NOVOPROD-243333

PATIENT
  Age: 65 Year
  Sex: Male

DRUGS (1)
  1. NOVOSEVEN [Suspect]
     Indication: CEREBRAL HAEMORRHAGE
     Dosage: 1.2 MG, UNK
     Dates: start: 20050328, end: 20050328

REACTIONS (2)
  - CONCOMITANT DISEASE PROGRESSION [None]
  - DEATH [None]
